FAERS Safety Report 12586968 (Version 1)
Quarter: 2016Q3

REPORT INFORMATION
  Report Type: Spontaneous
  Country: US (occurrence: None)
  Receive Date: 20160722
  Receipt Date: 20160722
  Transmission Date: 20161109
  Serious: Yes (Hospitalization)
  Sender: FDA-Public Use
  Company Number: None

PATIENT
  Age: 7 Year
  Sex: Female
  Weight: 17.9 kg

DRUGS (5)
  1. CYTARABINE. [Suspect]
     Active Substance: CYTARABINE
     Dates: end: 20160701
  2. METHOTREXATE. [Suspect]
     Active Substance: METHOTREXATE
     Dates: end: 20160708
  3. ONCASPAR [Suspect]
     Active Substance: PEGASPARGASE
     Dates: end: 20160704
  4. DEXAMETHASONE. [Suspect]
     Active Substance: DEXAMETHASONE
     Dates: end: 20160717
  5. VINCRISTINE SULFATE. [Suspect]
     Active Substance: VINCRISTINE SULFATE
     Dates: end: 20160715

REACTIONS (5)
  - Intracranial venous sinus thrombosis [None]
  - Superior sagittal sinus thrombosis [None]
  - Jugular vein thrombosis [None]
  - Vasogenic cerebral oedema [None]
  - Transverse sinus thrombosis [None]

NARRATIVE: CASE EVENT DATE: 20160717
